FAERS Safety Report 13354378 (Version 1)
Quarter: 2017Q1

REPORT INFORMATION
  Report Type: Spontaneous
  Country: UA (occurrence: UA)
  Receive Date: 20170321
  Receipt Date: 20170321
  Transmission Date: 20170429
  Serious: Yes (Other)
  Sender: FDA-Public Use
  Company Number: PHHY2017UA039835

PATIENT
  Age: 72 Year
  Sex: Male

DRUGS (2)
  1. AFINITOR [Suspect]
     Active Substance: EVEROLIMUS
     Indication: RENAL CYST
  2. AFINITOR [Suspect]
     Active Substance: EVEROLIMUS
     Indication: RENAL CANCER METASTATIC
     Dosage: 800 MG, QD
     Route: 048
     Dates: start: 20170309

REACTIONS (7)
  - Loss of consciousness [Unknown]
  - Back pain [Unknown]
  - Dyspnoea [Unknown]
  - Epistaxis [Unknown]
  - Asthenia [Unknown]
  - Dizziness [Unknown]
  - Hypoventilation [Unknown]

NARRATIVE: CASE EVENT DATE: 20170311
